FAERS Safety Report 8773530 (Version 2)
Quarter: 2012Q4

REPORT INFORMATION
  Report Type: 
  Country: US (occurrence: US)
  Receive Date: 20120907
  Receipt Date: 20121119
  Transmission Date: 20130627
  Serious: No
  Sender: FDA-Public Use
  Company Number: US-009507513-1208USA010442

PATIENT

DRUGS (9)
  1. CLARITIN CHEWABLE TABLETS [Suspect]
     Indication: RHINORRHOEA
     Dosage: UNK, prn
     Route: 048
  2. CLARITIN CHEWABLE TABLETS [Suspect]
     Indication: HEADACHE
  3. NORVASC [Concomitant]
     Indication: BLOOD PRESSURE
     Dosage: UNK, Unknown
  4. BENICAR [Concomitant]
     Indication: BLOOD PRESSURE
     Dosage: UNK, Unknown
  5. MAXIDE [Concomitant]
     Indication: BLOOD PRESSURE
     Dosage: UNK, Unknown
  6. POTASSIUM (UNSPECIFIED) [Concomitant]
     Indication: PRODUCT USED FOR UNKNOWN INDICATION
     Dosage: UNK, Unknown
  7. LIPITOR [Concomitant]
     Indication: PRODUCT USED FOR UNKNOWN INDICATION
     Dosage: UNK, Unknown
  8. ASPIRIN [Concomitant]
     Indication: CARDIAC DISORDER
     Dosage: UNK, Unknown
  9. COREG [Concomitant]
     Indication: CARDIAC DISORDER
     Dosage: UNK, Unknown

REACTIONS (1)
  - Drug ineffective [Unknown]
